FAERS Safety Report 8896846 (Version 1)
Quarter: 2012Q4

REPORT INFORMATION
  Report Type: Spontaneous
  Country: US (occurrence: None)
  Receive Date: 20121102
  Receipt Date: 20121102
  Transmission Date: 20130627
  Serious: Yes (Other)
  Sender: FDA-Public Use
  Company Number: E2B_00000431

PATIENT
  Age: 37 Year
  Sex: Female
  Weight: 88.45 kg

DRUGS (4)
  1. LEVETIRACETAM [Suspect]
     Indication: CONVULSION PROPHYLAXIS
     Dosage: 1500 (750 mg, 2 in 1 d), per oral
     Route: 048
     Dates: start: 20111116
  2. LEVETIRACETAM [Suspect]
     Indication: CONVULSION PROPHYLAXIS
     Route: 048
     Dates: start: 20121005
  3. LEVETIRACETAM [Suspect]
     Indication: CONVULSION PROPHYLAXIS
     Route: 048
     Dates: start: 20121013
  4. ZOLPIDEM (AMBIEN) [Concomitant]

REACTIONS (5)
  - Dysgeusia [None]
  - Paraesthesia [None]
  - Convulsion [None]
  - Drug ineffective [None]
  - Feeling abnormal [None]
